FAERS Safety Report 15782987 (Version 1)
Quarter: 2019Q1

REPORT INFORMATION
  Report Type: Spontaneous
  Country: US (occurrence: US)
  Receive Date: 20190102
  Receipt Date: 20190102
  Transmission Date: 20190417
  Serious: No
  Sender: FDA-Public Use
  Company Number: US-PERRIGO-18US000163

PATIENT
  Age: 32 Year
  Sex: Female
  Weight: 53.52 kg

DRUGS (8)
  1. ADVIL [Concomitant]
     Active Substance: IBUPROFEN
     Indication: VULVOVAGINAL SWELLING
  2. TIOCONAZOLE. [Suspect]
     Active Substance: TIOCONAZOLE
     Indication: VULVOVAGINAL MYCOTIC INFECTION
     Dosage: 300 MG, SINGLE
     Route: 067
     Dates: start: 20180103, end: 20180103
  3. ADVIL [Concomitant]
     Active Substance: IBUPROFEN
     Indication: VULVOVAGINAL PAIN
  4. ADVIL [Concomitant]
     Active Substance: IBUPROFEN
     Indication: INSOMNIA
  5. ADVIL [Concomitant]
     Active Substance: IBUPROFEN
     Indication: VULVOVAGINAL DISCOMFORT
     Dosage: UNKNOWN, UNKNOWN
     Route: 065
     Dates: start: 201801
  6. ADVIL [Concomitant]
     Active Substance: IBUPROFEN
     Indication: VULVOVAGINAL PRURITUS
  7. ADVIL [Concomitant]
     Active Substance: IBUPROFEN
     Indication: CONDITION AGGRAVATED
  8. TIOCONAZOLE. [Suspect]
     Active Substance: TIOCONAZOLE
     Indication: VULVOVAGINAL DISCOMFORT

REACTIONS (6)
  - Vulvovaginal discomfort [Not Recovered/Not Resolved]
  - Insomnia [Recovered/Resolved]
  - Condition aggravated [Not Recovered/Not Resolved]
  - Vulvovaginal pruritus [Recovered/Resolved]
  - Vulvovaginal pain [Not Recovered/Not Resolved]
  - Vulvovaginal swelling [Not Recovered/Not Resolved]

NARRATIVE: CASE EVENT DATE: 20180103
